FAERS Safety Report 5917565-0 (Version None)
Quarter: 2008Q4

REPORT INFORMATION
  Report Type: 
  Country: None (occurrence: None)
  Receive Date: 20081009
  Receipt Date: 20081003
  Transmission Date: 20090506
  Serious: Yes (Life-Threatening, Hospitalization, Disabling)
  Sender: FDA-Public Use
  Company Number: ADE2008-0332

PATIENT
  Age: 88 Year
  Sex: Female

DRUGS (9)
  1. SIMVASTATIN [Suspect]
     Indication: BLOOD CHOLESTEROL INCREASED
     Dosage: 20 MG- ORAL
     Route: 048
     Dates: end: 20080917
  2. AMIODARONE HCL [Suspect]
     Indication: ATRIAL FIBRILLATION
     Dosage: 200MG - QD- ORAL
     Route: 048
     Dates: start: 20080913, end: 20080917
  3. ACETAMINOPHEN W/ CODEINE [Concomitant]
  4. FELODIPINE [Concomitant]
  5. FLUTICASONE PROPIONATE [Concomitant]
  6. IMIPRAMINE HCL [Concomitant]
  7. OMEPRAZOLE [Concomitant]
  8. SALBUTAMOL [Concomitant]
  9. VALSART [Concomitant]

REACTIONS (3)
  - CHEST X-RAY ABNORMAL [None]
  - DYSPNOEA [None]
  - MALAISE [None]
